FAERS Safety Report 13343225 (Version 1)
Quarter: 2017Q1

REPORT INFORMATION
  Report Type: Spontaneous
  Country: US (occurrence: US)
  Receive Date: 20170316
  Receipt Date: 20170316
  Transmission Date: 20170428
  Serious: Yes (Other)
  Sender: FDA-Public Use
  Company Number: US-JNJFOC-20170311837

PATIENT
  Sex: Female
  Weight: 61.24 kg

DRUGS (5)
  1. TOPAMAX [Suspect]
     Active Substance: TOPIRAMATE
     Indication: MIGRAINE
     Route: 048
  2. GEODON [Suspect]
     Active Substance: ZIPRASIDONE HYDROCHLORIDE\ZIPRASIDONE MESYLATE
     Indication: PSYCHOTIC DISORDER
     Route: 065
     Dates: end: 2016
  3. RITALIN [Suspect]
     Active Substance: METHYLPHENIDATE HYDROCHLORIDE
     Indication: ATTENTION DEFICIT/HYPERACTIVITY DISORDER
     Dosage: TOOK 20 MG, 1 IN MORNING AT OTHER TIMES TOOK IT 2 TIMES A DAY, SOMETIMES 3 TIMES A DAY.
     Route: 065
  4. TOPAMAX [Suspect]
     Active Substance: TOPIRAMATE
     Indication: MIGRAINE
     Dosage: TAPERRED OFF THE TOPIRAMATE FROM FEB/MAR-2016.
     Route: 048
     Dates: start: 2016, end: 201607
  5. GEODON [Suspect]
     Active Substance: ZIPRASIDONE HYDROCHLORIDE\ZIPRASIDONE MESYLATE
     Indication: PSYCHOTIC DISORDER
     Dosage: SEP/OCT-2016; 40 MG IN THE MORNING AND 60 MG IN THE NIGHT
     Route: 065
     Dates: start: 2016

REACTIONS (2)
  - Bipolar disorder [Unknown]
  - Parkinson^s disease [Not Recovered/Not Resolved]

NARRATIVE: CASE EVENT DATE: 2016
